FAERS Safety Report 9636586 (Version 6)
Quarter: 2013Q4

REPORT INFORMATION
  Report Type: Spontaneous
  Country: JP (occurrence: JP)
  Receive Date: 20131021
  Receipt Date: 20131129
  Transmission Date: 20140711
  Serious: Yes (Hospitalization, Other)
  Sender: FDA-Public Use
  Company Number: JP-ABBVIE-13X-087-1133627-00

PATIENT
  Age: 44 Year
  Sex: Female
  Weight: 50 kg

DRUGS (5)
  1. CLARITH [Suspect]
     Indication: HELICOBACTER INFECTION
     Route: 048
     Dates: start: 20110613, end: 20110620
  2. TAKEPRON [Suspect]
     Indication: HELICOBACTER INFECTION
     Route: 048
     Dates: start: 20130713, end: 20130720
  3. SAWACILLIN [Suspect]
     Indication: HELICOBACTER INFECTION
     Route: 048
     Dates: start: 20110613, end: 20110620
  4. TAKEPRON [Concomitant]
     Indication: HELICOBACTER INFECTION
     Route: 048
     Dates: start: 20110613, end: 20110620
  5. BIOFERMIN R [Concomitant]
     Indication: HELICOBACTER INFECTION
     Route: 048
     Dates: start: 20110613, end: 20110620

REACTIONS (1)
  - Oculomucocutaneous syndrome [Recovered/Resolved]
